FAERS Safety Report 24293831 (Version 1)
Quarter: 2024Q3

REPORT INFORMATION
  Report Type: Spontaneous
  Country: US (occurrence: None)
  Receive Date: 20240906
  Receipt Date: 20240906
  Transmission Date: 20241017
  Serious: No
  Sender: DOMPE FARMACEUTICI
  Company Number: US-FARMAPROD-202403-0712

PATIENT
  Sex: Male

DRUGS (27)
  1. OXERVATE [Suspect]
     Active Substance: CENEGERMIN-BKBJ
     Indication: Neurotrophic keratopathy
     Route: 047
     Dates: start: 20240222
  2. OXERVATE [Suspect]
     Active Substance: CENEGERMIN-BKBJ
  3. FENOFIBRATE [Concomitant]
     Active Substance: FENOFIBRATE
  4. AZATHIOPRINE [Concomitant]
     Active Substance: AZATHIOPRINE
  5. MOTEGRITY [Concomitant]
     Active Substance: PRUCALOPRIDE SUCCINATE
  6. ROCKLATAN [Concomitant]
     Active Substance: LATANOPROST\NETARSUDIL MESYLATE
     Dosage: 0.02-0.005
  7. ERYTHROMYCIN [Concomitant]
     Active Substance: ERYTHROMYCIN
  8. ALENDRONATE SODIUM [Concomitant]
     Active Substance: ALENDRONATE SODIUM
  9. FAMOTIDINE [Concomitant]
     Active Substance: FAMOTIDINE
  10. PANTOPRAZOLE SODIUM [Concomitant]
     Active Substance: PANTOPRAZOLE SODIUM
  11. PREVYMIS [Concomitant]
     Active Substance: LETERMOVIR
  12. SULFAMETHOXAZOLE\TRIMETHOPRIM [Concomitant]
     Active Substance: SULFAMETHOXAZOLE\TRIMETHOPRIM
  13. FLAXSEED [Concomitant]
     Active Substance: FLAX SEED
  14. MAGNESIUM [Concomitant]
     Active Substance: MAGNESIUM
  15. FISH OIL [Concomitant]
     Active Substance: FISH OIL
     Dosage: 100-160 MG
  16. VITAMINS [Concomitant]
     Active Substance: VITAMINS
  17. OYSTER SHELL-D [Concomitant]
     Dosage: 250-3.125
  18. LANTUS [Concomitant]
     Active Substance: INSULIN GLARGINE
     Dosage: VIAL
  19. METFORMIN HYDROCHLORIDE [Concomitant]
     Active Substance: METFORMIN HYDROCHLORIDE
  20. PRAVASTATIN SODIUM [Concomitant]
     Active Substance: PRAVASTATIN SODIUM
  21. HUMALOG JUNIOR [Concomitant]
     Dosage: KWIKPEN
  22. LISINOPRIL [Concomitant]
     Active Substance: LISINOPRIL
  23. TRAMADOL HCL [Concomitant]
     Active Substance: TRAMADOL HYDROCHLORIDE
  24. PREDNISONE [Concomitant]
     Active Substance: PREDNISONE
  25. NORETHINDRONE ACETATE [Concomitant]
     Active Substance: NORETHINDRONE ACETATE
  26. POSACONAZOLE [Concomitant]
     Active Substance: POSACONAZOLE
  27. TACROLIMUS [Concomitant]
     Active Substance: TACROLIMUS

REACTIONS (2)
  - Eye pain [Unknown]
  - Eye irritation [Unknown]
